FAERS Safety Report 7075679-9 (Version None)
Quarter: 2010Q4

REPORT INFORMATION
  Report Type: 
  Country: None (occurrence: None)
  Receive Date: 20101031
  Receipt Date: 20101028
  Transmission Date: 20110411
  Serious: Yes (Other)
  Sender: FDA-Public Use
  Company Number: US-WYE-H18437810

PATIENT
  Sex: Male
  Weight: 89.89 kg

DRUGS (6)
  1. PROTONIX [Suspect]
     Indication: GASTROOESOPHAGEAL REFLUX DISEASE
     Route: 048
     Dates: start: 20090218, end: 20100801
  2. XANAX [Concomitant]
  3. ACETYLSALICYLIC ACID SRT [Concomitant]
  4. CARVEDILOL [Concomitant]
  5. PLAVIX [Concomitant]
     Dosage: UNKNOWN
     Dates: end: 20100101
  6. SIMVASTATIN [Concomitant]
     Dosage: UNKNOWN

REACTIONS (6)
  - CONDITION AGGRAVATED [None]
  - CORONARY ARTERY OCCLUSION [None]
  - FATIGUE [None]
  - GASTROOESOPHAGEAL REFLUX DISEASE [None]
  - INCISION SITE INFECTION [None]
  - INFECTION [None]
